FAERS Safety Report 6905448-9 (Version None)
Quarter: 2010Q3

REPORT INFORMATION
  Report Type: 
  Country: None (occurrence: None)
  Receive Date: 20100804
  Receipt Date: 20100722
  Transmission Date: 20110219
  Serious: Yes (Other)
  Sender: FDA-Public Use
  Company Number: PHFR2010IE01265

PATIENT
  Sex: Female

DRUGS (3)
  1. CLOZARIL [Suspect]
     Indication: SCHIZOPHRENIA
     Dosage: 325 MG, QD
     Route: 048
     Dates: start: 20090715
  2. CLOZARIL [Suspect]
     Dosage: 975 MG, QD
     Route: 048
  3. ALCOHOL [Concomitant]

REACTIONS (2)
  - OVERDOSE [None]
  - VISION BLURRED [None]
